FAERS Safety Report 4298530-9 (Version None)
Quarter: 2004Q1

REPORT INFORMATION
  Report Type: 
  Country: None (occurrence: None)
  Receive Date: 20040218
  Receipt Date: 20040211
  Transmission Date: 20041129
  Serious: Yes (Other)
  Sender: FDA-Public Use
  Company Number: WAES 0402GBR00139

PATIENT
  Age: 76 Year
  Sex: Male
  Weight: 64 kg

DRUGS (4)
  1. ACETAMINOPHEN [Concomitant]
     Indication: BACK PAIN
  2. FENTANYL [Concomitant]
     Indication: BACK PAIN
     Route: 061
  3. FLUOXETINE [Concomitant]
     Indication: BACK PAIN
  4. VIOXX [Suspect]
     Indication: BACK PAIN
     Route: 048
     Dates: start: 20020701, end: 20031029

REACTIONS (1)
  - LIVER DISORDER [None]
